FAERS Safety Report 16958752 (Version 6)
Quarter: 2020Q2

REPORT INFORMATION
  Report Type: Report from Study
  Country: US (occurrence: US)
  Receive Date: 20191024
  Receipt Date: 20200422
  Transmission Date: 20200713
  Serious: Yes (Other)
  Sender: FDA-Public Use
  Company Number: US-ACTELION-A-US2017-164880

PATIENT
  Age: 80 Year
  Sex: Female
  Weight: 51.7 kg

DRUGS (2)
  1. ELIQUIS [Concomitant]
     Active Substance: APIXABAN
  2. OPSUMIT [Suspect]
     Active Substance: MACITENTAN
     Indication: PULMONARY ARTERIAL HYPERTENSION
     Dosage: 10 MG, QD
     Route: 048

REACTIONS (17)
  - Blood pressure increased [Unknown]
  - Pulmonary arterial hypertension [Unknown]
  - Dizziness [Unknown]
  - Oropharyngeal pain [Unknown]
  - Nasopharyngitis [Unknown]
  - Gastrooesophageal reflux disease [Unknown]
  - Oropharyngeal discomfort [Unknown]
  - Influenza [Unknown]
  - Malaise [Unknown]
  - Fatigue [Unknown]
  - Productive cough [Unknown]
  - Confusional state [Recovered/Resolved]
  - Dyspnoea [Unknown]
  - Product dose omission [Recovered/Resolved]
  - Unevaluable event [Unknown]
  - Vocal cord disorder [Unknown]
  - Respiratory tract infection [Unknown]

NARRATIVE: CASE EVENT DATE: 20180102
